FAERS Safety Report 5128194-3 (Version None)
Quarter: 2006Q4

REPORT INFORMATION
  Report Type: 
  Country: None (occurrence: None)
  Receive Date: 20061011
  Receipt Date: 20061004
  Transmission Date: 20070319
  Serious: Yes (Other)
  Sender: FDA-Public Use
  Company Number: 2006120435

PATIENT
  Age: 51 Year
  Sex: Male
  Weight: 88.4514 kg

DRUGS (2)
  1. ROLAIDS EXTRA STRENGTH PLUS GAS TOPICAL PUNCH (SIMETHICONE, CALCIUM [Suspect]
     Indication: DYSPEPSIA
     Dosage: 1 CHEW AS NEEDED, ORAL
     Route: 048
     Dates: start: 20061003
  2. DRUG, UNSPECIFIED [Concomitant]

REACTIONS (5)
  - DEHYDRATION [None]
  - DIZZINESS [None]
  - HYPERSENSITIVITY [None]
  - HYPOTENSION [None]
  - SYNCOPE [None]
